FAERS Safety Report 4663539-X (Version None)
Quarter: 2005Q2

REPORT INFORMATION
  Report Type: 
  Country: None (occurrence: None)
  Receive Date: 20050517
  Receipt Date: 20050510
  Transmission Date: 20051028
  Serious: Yes (Other)
  Sender: FDA-Public Use
  Company Number: GB-GLAXOSMITHKLINE-B0380426A

PATIENT
  Age: 25 Year
  Sex: Male

DRUGS (1)
  1. ZYBAN [Suspect]
     Indication: SMOKING CESSATION THERAPY
     Dosage: 150MG UNKNOWN
     Route: 048
     Dates: start: 20050414, end: 20050429

REACTIONS (3)
  - DERMATITIS ALLERGIC [None]
  - OEDEMA PERIPHERAL [None]
  - PERIORBITAL OEDEMA [None]
